FAERS Safety Report 8438816-7 (Version None)
Quarter: 2012Q2

REPORT INFORMATION
  Report Type: 
  Country: None (occurrence: None)
  Receive Date: 20120323
  Receipt Date: 20111130
  Transmission Date: 20120825
  Serious: Yes (Other)
  Sender: FDA-Public Use
  Company Number: 163-21880-11062585

PATIENT
  Age: 55 Year
  Sex: Female
  Weight: 62.5964 kg

DRUGS (5)
  1. FISH OIL (FISH OIL) [Concomitant]
  2. BAYER'S ASA (ACETYLSALICYLIC ACID) [Concomitant]
  3. REVLIMID [Suspect]
     Indication: MULTIPLE MYELOMA
     Dosage: 10 MG DAILY X 21 DAYS, PO
     Route: 048
     Dates: start: 20110602, end: 20110609
  4. LIPITOR (ATORVASTATIN0 [Concomitant]
  5. BONIVA (IBANDRONATE SODIIUM) [Concomitant]

REACTIONS (5)
  - RASH [None]
  - SWELLING FACE [None]
  - HYPERSENSITIVITY [None]
  - PRURITUS [None]
  - LOCAL SWELLING [None]
